FAERS Safety Report 16143065 (Version 3)
Quarter: 2019Q3

REPORT INFORMATION
  Report Type: Spontaneous
  Country: US (occurrence: US)
  Receive Date: 20190401
  Receipt Date: 20190813
  Transmission Date: 20191004
  Serious: Yes (Hospitalization, Other)
  Sender: FDA-Public Use
  Company Number: US-PFIZER INC-2019130598

PATIENT
  Age: 96 Year
  Sex: Male
  Weight: 80.29 kg

DRUGS (37)
  1. METOPROLOL. [Concomitant]
     Active Substance: METOPROLOL
     Dosage: 150 MG, 2X/DAY
  2. COLECALCIFEROL [Concomitant]
     Active Substance: CHOLECALCIFEROL
     Dosage: UNK
     Dates: end: 201905
  3. COPPER [Concomitant]
     Active Substance: COPPER
     Dosage: UNK
     Dates: end: 201905
  4. IODINE. [Concomitant]
     Active Substance: IODINE
     Dosage: UNK
     Dates: end: 201905
  5. NICOTINAMIDE [Concomitant]
     Active Substance: NIACINAMIDE
     Dosage: UNK
     Dates: end: 201905
  6. VITAMIN E NOS [Concomitant]
     Active Substance: .ALPHA.-TOCOPHEROL
     Dosage: UNK
     Dates: end: 201905
  7. XANTOFYL [Concomitant]
     Dosage: UNK
     Dates: end: 201905
  8. CHROMIUM [Concomitant]
     Active Substance: CHROMIC CHLORIDE\CHROMIUM
     Dosage: UNK
     Dates: end: 201905
  9. RIBOFLAVIN [Concomitant]
     Active Substance: RIBOFLAVIN
     Dosage: UNK
     Dates: end: 201905
  10. ZYVOX [Suspect]
     Active Substance: LINEZOLID
     Indication: STAPHYLOCOCCAL INFECTION
     Dosage: 600 MG, 2X/DAY (FOR 14 DAYS + TO COME OFF OF IT FOR 2-3 WEEKS)
     Dates: start: 201406, end: 201812
  11. ZYVOX [Suspect]
     Active Substance: LINEZOLID
     Dosage: 600 MG, 2X/DAY (14 TO 15 DAYS AND THEN GOES OFF THE PRODUCT FOR 10 TO 12 DAYS)
     Dates: start: 201901, end: 20190628
  12. FOLIC ACID. [Concomitant]
     Active Substance: FOLIC ACID
     Dosage: UNK
     Dates: end: 201905
  13. IRON [Concomitant]
     Active Substance: IRON
     Dosage: UNK
     Dates: end: 201905
  14. PYRIDOXINE HYDROCHLORIDE. [Concomitant]
     Active Substance: PYRIDOXINE HYDROCHLORIDE
     Dosage: UNK
     Dates: end: 201905
  15. RETINOL [Concomitant]
     Active Substance: RETINOL
     Dosage: UNK
     Dates: end: 201905
  16. SELENIUM [Concomitant]
     Active Substance: SELENIUM
     Dosage: UNK
     Dates: end: 201905
  17. MEGESTROL ACETATE. [Concomitant]
     Active Substance: MEGESTROL ACETATE
     Indication: APPETITE DISORDER
     Dosage: UNK
  18. CENTRUM SILVER [ASCORBIC ACID;BETACAROTENE;BIOTIN;CALCIUM;CHROMIUM;COL [Concomitant]
     Dosage: UNK, 1X/DAY
     Dates: end: 201905
  19. PANTOTHENIC ACID [Concomitant]
     Active Substance: PANTOTHENIC ACID
     Dosage: UNK
     Dates: end: 201905
  20. POTASSIUM [Concomitant]
     Active Substance: POTASSIUM
     Dosage: UNK
     Dates: end: 201905
  21. VITAMIN B1 [Concomitant]
     Active Substance: THIAMINE HYDROCHLORIDE
     Dosage: UNK
     Dates: end: 201905
  22. SENOKOT [Concomitant]
     Active Substance: SENNOSIDES
     Dosage: UNK UNK, DAILY
  23. MIRALAX [Concomitant]
     Active Substance: POLYETHYLENE GLYCOL 3350
     Dosage: UNK UNK, AS NEEDED
  24. PROBIOTIC [BIFIDOBACTERIUM LACTIS] [Concomitant]
     Active Substance: BIFIDOBACTERIUM ANIMALIS LACTIS
     Dosage: UNK, 2X/DAY
     Dates: start: 201809
  25. BIOTIN [Concomitant]
     Active Substance: BIOTIN
     Dosage: UNK
     Dates: end: 201905
  26. CALCIUM [Concomitant]
     Active Substance: CALCIUM
     Dosage: UNK
     Dates: end: 201905
  27. ASPIRIN [ACETYLSALICYLIC ACID] [Concomitant]
     Active Substance: ASPIRIN
     Dosage: 81 MG, DAILY
  28. BETACAROTENE [Concomitant]
     Active Substance: .BETA.-CAROTENE
     Dosage: UNK
     Dates: end: 201905
  29. PHYTOMENADIONE [Concomitant]
     Active Substance: PHYTONADIONE
     Dosage: UNK
     Dates: end: 201905
  30. FUROSEMIDE. [Concomitant]
     Active Substance: FUROSEMIDE
     Dosage: 40 MG, DAILY
  31. FINASTERIDE. [Concomitant]
     Active Substance: FINASTERIDE
     Dosage: 5 MG, DAILY
  32. VITAMIN B12 [Concomitant]
     Active Substance: CYANOCOBALAMIN
     Dosage: UNK, MONTHLY
  33. ASCORBIC ACID. [Concomitant]
     Active Substance: ASCORBIC ACID
     Dosage: UNK
     Dates: end: 201905
  34. LYCOPENE [Concomitant]
     Active Substance: LYCOPENE
     Dosage: UNK
     Dates: end: 201905
  35. MAGNESIUM [Concomitant]
     Active Substance: MAGNESIUM
     Dosage: UNK
     Dates: end: 201905
  36. MANGANESE [Concomitant]
     Active Substance: MANGANESE CHLORIDE
     Dosage: UNK
     Dates: end: 201905
  37. PHOSPHORUS [Concomitant]
     Active Substance: PHOSPHORUS
     Dosage: UNK
     Dates: end: 201905

REACTIONS (13)
  - Gait disturbance [Not Recovered/Not Resolved]
  - Malaise [Unknown]
  - Thrombocytopenia [Recovered/Resolved]
  - Chills [Unknown]
  - Muscular weakness [Recovered/Resolved]
  - Pyrexia [Unknown]
  - Off label use [Unknown]
  - Weight decreased [Not Recovered/Not Resolved]
  - Product use issue [Unknown]
  - Joint abscess [Unknown]
  - Decreased appetite [Not Recovered/Not Resolved]
  - Platelet count decreased [Recovered/Resolved]
  - Fatigue [Unknown]

NARRATIVE: CASE EVENT DATE: 201901
